FAERS Safety Report 18620797 (Version 7)
Quarter: 2022Q1

REPORT INFORMATION
  Report Type: Report from Study
  Country: AR (occurrence: AR)
  Receive Date: 20201216
  Receipt Date: 20220319
  Transmission Date: 20220423
  Serious: Yes (Other)
  Sender: FDA-Public Use
  Company Number: AR-AMGEN-ARGSL2020202026

PATIENT
  Sex: Male

DRUGS (1)
  1. XGEVA [Suspect]
     Active Substance: DENOSUMAB
     Indication: Metastases to bone
     Dosage: UNK
     Route: 065
     Dates: start: 20191001

REACTIONS (8)
  - Liver injury [Unknown]
  - Neoplasm progression [Unknown]
  - Metastases to liver [Unknown]
  - Diarrhoea [Unknown]
  - Renal pain [Unknown]
  - Weight decreased [Unknown]
  - Pain [Unknown]
  - Malaise [Unknown]
